FAERS Safety Report 7082598-0 (Version None)
Quarter: 2010Q4

REPORT INFORMATION
  Report Type: 
  Country: None (occurrence: None)
  Receive Date: 20101104
  Receipt Date: 20101025
  Transmission Date: 20110411
  Serious: Yes (Hospitalization, Other)
  Sender: FDA-Public Use
  Company Number: JP-JNJFOC-20101004337

PATIENT
  Age: 75 Year
  Sex: Male
  Weight: 64 kg

DRUGS (20)
  1. DUROTEP MT [Suspect]
     Indication: CANCER PAIN
     Route: 062
  2. BENZODIAZEPINE NOS [Suspect]
     Indication: ILL-DEFINED DISORDER
     Route: 065
  3. HYPNOTICS [Suspect]
     Indication: ILL-DEFINED DISORDER
     Route: 065
  4. HALCION [Suspect]
     Indication: ILL-DEFINED DISORDER
     Route: 048
  5. ROHYPNOL [Suspect]
     Indication: ILL-DEFINED DISORDER
     Route: 048
  6. UNKNOWN MEDICATION [Concomitant]
     Indication: PROSTATE CANCER
     Route: 048
  7. UNKNOWN MEDICATION [Concomitant]
     Indication: SPINAL OSTEOARTHRITIS
     Route: 048
  8. UNKNOWN MEDICATION [Concomitant]
     Indication: HEPATIC CIRRHOSIS
     Route: 048
  9. UNKNOWN MEDICATION [Concomitant]
     Indication: MYOCARDIAL ISCHAEMIA
     Route: 048
  10. UNKNOWN MEDICATION [Concomitant]
     Indication: HYPERTENSION
     Route: 048
  11. AMLODIN OD [Concomitant]
     Route: 048
  12. TAKEPRON [Concomitant]
     Route: 048
  13. PURSENNID [Concomitant]
     Route: 048
  14. EPL [Concomitant]
     Route: 048
  15. URSO 250 [Concomitant]
     Route: 048
  16. MYONAL [Concomitant]
     Route: 048
  17. CYANOCOBALAMIN [Concomitant]
     Route: 048
  18. SIGMART [Concomitant]
     Route: 048
  19. COMELIAN [Concomitant]
     Route: 048
  20. UBRETID [Concomitant]
     Route: 048

REACTIONS (5)
  - ALTERED STATE OF CONSCIOUSNESS [None]
  - DRUG ADMINISTERED AT INAPPROPRIATE SITE [None]
  - DRUG DIVERSION [None]
  - FEELING ABNORMAL [None]
  - INTENTIONAL DRUG MISUSE [None]
